FAERS Safety Report 6277749-1 (Version None)
Quarter: 2009Q3

REPORT INFORMATION
  Report Type: 
  Country: None (occurrence: None)
  Receive Date: 20090722
  Receipt Date: 20090714
  Transmission Date: 20100115
  Serious: Yes (Other)
  Sender: FDA-Public Use
  Company Number: B0582998A

PATIENT
  Sex: Male

DRUGS (5)
  1. ZOFRAN [Suspect]
     Indication: GASTROINTESTINAL DISORDER
     Dosage: 2ML PER DAY
     Route: 042
     Dates: start: 20090604, end: 20090604
  2. ZOFRAN [Suspect]
     Dosage: 2ML PER DAY
     Route: 042
     Dates: start: 20090618, end: 20090619
  3. ZOFRAN [Suspect]
     Dosage: 2ML PER DAY
     Route: 042
     Dates: start: 20090702, end: 20090703
  4. DECADRON [Suspect]
     Route: 065
     Dates: start: 20090618, end: 20090618
  5. UNKNOWN DRUG [Suspect]
     Route: 065
     Dates: start: 20090619, end: 20090619

REACTIONS (5)
  - ABNORMAL BEHAVIOUR [None]
  - DYSKINESIA [None]
  - EPILEPSY [None]
  - NYSTAGMUS [None]
  - TREMOR [None]
